FAERS Safety Report 20615800 (Version 2)
Quarter: 2022Q1

REPORT INFORMATION
  Report Type: Report from Study
  Country: US (occurrence: US)
  Receive Date: 20220321
  Receipt Date: 20220324
  Transmission Date: 20220423
  Serious: No
  Sender: FDA-Public Use
  Company Number: US-NOVARTISTESTPH-NVSC2022US063479

PATIENT
  Sex: Male

DRUGS (1)
  1. ENTRESTO [Suspect]
     Active Substance: SACUBITRIL\VALSARTAN
     Indication: Cardiac failure
     Dosage: 200 MG, BID, EMULGEL (SACUBITRIL: 97 MG, VALSARTAN: 103 MG)
     Route: 048
     Dates: start: 201904

REACTIONS (3)
  - Dry throat [Unknown]
  - Throat irritation [Unknown]
  - Cough [Unknown]
